FAERS Safety Report 7723593-5 (Version None)
Quarter: 2011Q3

REPORT INFORMATION
  Report Type: 
  Country: None (occurrence: None)
  Receive Date: 20110901
  Receipt Date: 20110825
  Transmission Date: 20111222
  Serious: Yes (Other)
  Sender: FDA-Public Use
  Company Number: US-BAYER-2011-077704

PATIENT
  Age: 27 Year
  Sex: Female

DRUGS (1)
  1. BEYAZ [Suspect]
     Indication: CONTRACEPTION
     Dosage: UNK
     Dates: start: 20110501

REACTIONS (6)
  - EPISTAXIS [None]
  - ALOPECIA [None]
  - MIGRAINE [None]
  - PALPITATIONS [None]
  - MOOD SWINGS [None]
  - GENITAL HAEMORRHAGE [None]
